FAERS Safety Report 18751467 (Version 1)
Quarter: 2021Q1

REPORT INFORMATION
  Report Type: Spontaneous
  Country: CN (occurrence: CN)
  Receive Date: 20210118
  Receipt Date: 20210118
  Transmission Date: 20210419
  Serious: Yes (Other)
  Sender: FDA-Public Use
  Company Number: CN-PFIZER INC-2021030653

PATIENT
  Age: 14 Year
  Sex: Male

DRUGS (6)
  1. DEXAMETHASONE SODIUM PHOSPHATE. [Suspect]
     Active Substance: DEXAMETHASONE SODIUM PHOSPHATE
     Indication: ACUTE LYMPHOCYTIC LEUKAEMIA
     Dosage: 2.5 MG, 1X/DAY
     Route: 037
     Dates: start: 20201125, end: 20201125
  2. VINCRISTINE SULFATE. [Suspect]
     Active Substance: VINCRISTINE SULFATE
     Indication: ACUTE LYMPHOCYTIC LEUKAEMIA
     Dosage: 2 MG, 1X/DAY
     Route: 042
     Dates: start: 20201122, end: 20201122
  3. CYTOSAR [Suspect]
     Active Substance: CYTARABINE
     Indication: ACUTE LYMPHOCYTIC LEUKAEMIA
     Dosage: 0.035 G, 1X/DAY
     Route: 037
     Dates: start: 20201125, end: 20201125
  4. PEGASPARGASE [Suspect]
     Active Substance: PEGASPARGASE
     Indication: ACUTE LYMPHOCYTIC LEUKAEMIA
     Dosage: 3100 IU, 1X/DAY
     Route: 042
     Dates: start: 20201123, end: 20201123
  5. DAUNORUBICIN HYDROCHLORIDE. [Suspect]
     Active Substance: DAUNORUBICIN HYDROCHLORIDE
     Indication: ACUTE LYMPHOCYTIC LEUKAEMIA
     Dosage: 40 MG, 1X/DAY
     Route: 041
     Dates: start: 20201122, end: 20201122
  6. METHOTREXATE. [Suspect]
     Active Substance: METHOTREXATE
     Indication: ACUTE LYMPHOCYTIC LEUKAEMIA
     Dosage: 12.5 MG, 1X/DAY
     Route: 037
     Dates: start: 20201125, end: 20201125

REACTIONS (6)
  - Asthenia [Recovering/Resolving]
  - Platelet count decreased [Recovering/Resolving]
  - Dizziness [Recovering/Resolving]
  - Pallor [Recovering/Resolving]
  - Myelosuppression [Recovering/Resolving]
  - Mental status changes [Unknown]

NARRATIVE: CASE EVENT DATE: 20201126
